FAERS Safety Report 15424469 (Version 1)
Quarter: 2018Q3

REPORT INFORMATION
  Report Type: Spontaneous
  Country: MX (occurrence: MX)
  Receive Date: 20180925
  Receipt Date: 20180925
  Transmission Date: 20181010
  Serious: Yes (Death, Other)
  Sender: FDA-Public Use
  Company Number: MX-009507513-1809MEX009820

PATIENT
  Age: 64 Year
  Sex: Female

DRUGS (1)
  1. KEYTRUDA [Suspect]
     Active Substance: PEMBROLIZUMAB
     Indication: DNA MISMATCH REPAIR PROTEIN GENE MUTATION
     Dosage: UNK UNK, Q3W

REACTIONS (3)
  - Malignant neoplasm progression [Fatal]
  - Drug ineffective for unapproved indication [Unknown]
  - Product used for unknown indication [Unknown]
